FAERS Safety Report 9021942 (Version 3)
Quarter: 2013Q3

REPORT INFORMATION
  Report Type: Report from Study
  Country: JP (occurrence: JP)
  Receive Date: 20130118
  Receipt Date: 20130906
  Transmission Date: 20140515
  Serious: Yes (Other)
  Sender: FDA-Public Use
  Company Number: JP-JNJFOC-20130107443

PATIENT
  Age: 86 Year
  Sex: Female
  Weight: 44 kg

DRUGS (9)
  1. REMINYL [Suspect]
     Indication: DEMENTIA ALZHEIMER^S TYPE
     Route: 048
     Dates: start: 20130118
  2. REMINYL [Suspect]
     Indication: DEMENTIA ALZHEIMER^S TYPE
     Route: 048
     Dates: start: 20120831, end: 20130117
  3. REMINYL [Suspect]
     Indication: DEMENTIA ALZHEIMER^S TYPE
     Route: 048
     Dates: start: 20120803, end: 20120830
  4. SENNOSIDE [Concomitant]
     Indication: CONSTIPATION
     Route: 048
  5. BRUFEN [Concomitant]
     Indication: CERVICOBRACHIAL SYNDROME
     Route: 048
  6. REBAMIPIDE [Concomitant]
     Indication: GASTRIC ULCER
     Route: 048
  7. MUCOTRON [Concomitant]
     Indication: BRONCHITIS CHRONIC
     Route: 048
  8. DICLOFENAC SODIUM [Concomitant]
     Indication: CERVICOBRACHIAL SYNDROME
     Route: 062
  9. FRANDOL [Concomitant]
     Indication: ANGINA PECTORIS
     Route: 062

REACTIONS (1)
  - Blood pressure increased [Recovered/Resolved]
